FAERS Safety Report 6731982-0 (Version None)
Quarter: 2010Q2

REPORT INFORMATION
  Report Type: 
  Country: None (occurrence: None)
  Receive Date: 20100519
  Receipt Date: 20100506
  Transmission Date: 20101027
  Serious: Yes (Hospitalization)
  Sender: FDA-Public Use
  Company Number: PHHY2010CN29626

PATIENT
  Age: 15 Year
  Sex: Female

DRUGS (1)
  1. CARBAMAZEPINE [Suspect]
     Dosage: UNK
     Route: 048

REACTIONS (27)
  - BLOOD PRESSURE DECREASED [None]
  - COMA [None]
  - CONJUNCTIVAL OEDEMA [None]
  - CONVULSION [None]
  - COORDINATION ABNORMAL [None]
  - CORNEAL REFLEX DECREASED [None]
  - CYANOSIS [None]
  - DRY SKIN [None]
  - DYSPNOEA [None]
  - FOAMING AT MOUTH [None]
  - HEART RATE INCREASED [None]
  - HEART SOUNDS ABNORMAL [None]
  - HYPOTONIA [None]
  - INTENTIONAL OVERDOSE [None]
  - IRRITABILITY [None]
  - LETHARGY [None]
  - LOSS OF CONSCIOUSNESS [None]
  - MYDRIASIS [None]
  - OBSTRUCTIVE AIRWAYS DISORDER [None]
  - OXYGEN SATURATION DECREASED [None]
  - PULMONARY OEDEMA [None]
  - PUPILLARY LIGHT REFLEX TESTS ABNORMAL [None]
  - PYREXIA [None]
  - RALES [None]
  - REFLEXES ABNORMAL [None]
  - RESTLESSNESS [None]
  - VISION BLURRED [None]
